FAERS Safety Report 5510242-X (Version None)
Quarter: 2007Q4

REPORT INFORMATION
  Report Type: 
  Country: None (occurrence: None)
  Receive Date: 20071106
  Receipt Date: 20071023
  Transmission Date: 20080405
  Serious: Yes (Death, Hospitalization)
  Sender: FDA-Public Use
  Company Number: 230207K07BRA

PATIENT
  Age: 44 Year
  Sex: Female

DRUGS (2)
  1. REBIF [Suspect]
     Dosage: 44 MCG, 3 IN 1 WEEKS ; 22 MCG, 3 IN 1 WEEKS
     Dates: start: 20060511, end: 20070401
  2. REBIF [Suspect]
     Dosage: 44 MCG, 3 IN 1 WEEKS ; 22 MCG, 3 IN 1 WEEKS
     Dates: start: 20070401, end: 20071020

REACTIONS (5)
  - COMA [None]
  - DISEASE PROGRESSION [None]
  - MULTI-ORGAN FAILURE [None]
  - PARALYSIS [None]
  - RESPIRATORY FAILURE [None]
